FAERS Safety Report 7812720-7 (Version None)
Quarter: 2011Q4

REPORT INFORMATION
  Report Type: 
  Country: None (occurrence: None)
  Receive Date: 20111013
  Receipt Date: 20111003
  Transmission Date: 20120403
  Serious: Yes (Hospitalization)
  Sender: FDA-Public Use
  Company Number: US-ACTELION-A-NJ2011-50789

PATIENT

DRUGS (3)
  1. COUMADIN [Concomitant]
  2. TRACLEER [Suspect]
     Indication: PULMONARY ARTERIAL HYPERTENSION
     Dosage: UNK
     Route: 048
     Dates: start: 20090629
  3. TYVASO [Concomitant]

REACTIONS (11)
  - UTERINE HAEMORRHAGE [None]
  - DYSMENORRHOEA [None]
  - OEDEMA PERIPHERAL [None]
  - UTERINE CANCER [None]
  - HYSTERECTOMY [None]
  - ANAEMIA [None]
  - DEPRESSED MOOD [None]
  - COUGH [None]
  - OROPHARYNGEAL PAIN [None]
  - FATIGUE [None]
  - GLOSSODYNIA [None]
